FAERS Safety Report 9629804 (Version 3)
Quarter: 2014Q1

REPORT INFORMATION
  Report Type: Report from Study
  Country: IE (occurrence: IE)
  Receive Date: 20131017
  Receipt Date: 20140115
  Transmission Date: 20141002
  Serious: Yes (Hospitalization)
  Sender: FDA-Public Use
  Company Number: IE-BAYER-2013-114405

PATIENT
  Age: 55 Year
  Sex: Male
  Weight: 75 kg

DRUGS (9)
  1. NEXAVAR [Suspect]
     Indication: HEPATOCELLULAR CARCINOMA
     Dosage: 400 MG, BID
     Route: 048
     Dates: start: 20130804, end: 201309
  2. NEXAVAR [Suspect]
     Indication: HEPATOCELLULAR CARCINOMA
     Dosage: 400 MG, BID
     Route: 048
     Dates: start: 20130918, end: 20130930
  3. RIFAXIMIN [Concomitant]
  4. LACTULOSE [Concomitant]
  5. PANTOPRAZOLE [Concomitant]
  6. TRAMADOL [Concomitant]
  7. SPIRONOLACTONE [Concomitant]
  8. AMLODIPINE [Concomitant]
  9. DOMPERIDONE [Concomitant]

REACTIONS (2)
  - Diarrhoea [Recovered/Resolved]
  - Incontinence [Recovered/Resolved]
